FAERS Safety Report 13558860 (Version 3)
Quarter: 2017Q3

REPORT INFORMATION
  Report Type: Report from Study
  Country: None (occurrence: US)
  Receive Date: 20170518
  Receipt Date: 20170904
  Transmission Date: 20171127
  Serious: Yes (Hospitalization)
  Sender: FDA-Public Use
  Company Number: US-ABBVIE-17K-163-1976927-00

PATIENT
  Sex: Female
  Weight: 79 kg

DRUGS (6)
  1. HUMIRA [Suspect]
     Active Substance: ADALIMUMAB
     Route: 058
     Dates: start: 201702
  2. HUMIRA [Suspect]
     Active Substance: ADALIMUMAB
     Route: 058
     Dates: start: 2016, end: 201701
  3. WELLBUTRIN XL [Concomitant]
     Active Substance: BUPROPION HYDROCHLORIDE
     Indication: AFFECTIVE DISORDER
  4. ATORVASTATIN [Concomitant]
     Active Substance: ATORVASTATIN
     Indication: HYPERCHOLESTEROLAEMIA
  5. ZOLPIDEM [Concomitant]
     Active Substance: ZOLPIDEM\ZOLPIDEM TARTRATE
     Indication: INSOMNIA
  6. HUMIRA [Suspect]
     Active Substance: ADALIMUMAB
     Indication: CROHN^S DISEASE
     Route: 058
     Dates: start: 2015, end: 2016

REACTIONS (10)
  - Intestinal obstruction [Recovered/Resolved]
  - Alopecia [Not Recovered/Not Resolved]
  - Peripheral swelling [Not Recovered/Not Resolved]
  - Small intestinal obstruction [Recovered/Resolved]
  - Anaemia [Not Recovered/Not Resolved]
  - Eczema [Not Recovered/Not Resolved]
  - Abdominal distension [Not Recovered/Not Resolved]
  - Cellulitis [Recovered/Resolved]
  - Large intestine polyp [Recovered/Resolved]
  - Hypersensitivity [Not Recovered/Not Resolved]

NARRATIVE: CASE EVENT DATE: 2016
